FAERS Safety Report 10725881 (Version 1)
Quarter: 2015Q1

REPORT INFORMATION
  Report Type: Spontaneous
  Country: JP (occurrence: JP)
  Receive Date: 20150121
  Receipt Date: 20150121
  Transmission Date: 20150721
  Serious: Yes (Life-Threatening, Hospitalization)
  Sender: FDA-Public Use
  Company Number: JP-TEVA-2015-JP-000020J

PATIENT
  Age: 76 Year
  Sex: Male

DRUGS (2)
  1. VERAPAMIL HCL [Suspect]
     Active Substance: VERAPAMIL HYDROCHLORIDE
     Indication: PRODUCT USED FOR UNKNOWN INDICATION
     Route: 048
  2. GENINAX [Interacting]
     Active Substance: GARENOXACIN MESYLATE
     Indication: NASOPHARYNGITIS
     Route: 048

REACTIONS (2)
  - Adverse event [Unknown]
  - Drug interaction [Unknown]
